FAERS Safety Report 4617782-6 (Version None)
Quarter: 2005Q1

REPORT INFORMATION
  Report Type: 
  Country: None (occurrence: None)
  Receive Date: 20050324
  Receipt Date: 20050316
  Transmission Date: 20050727
  Serious: Yes (Other)
  Sender: FDA-Public Use
  Company Number: CA-GLAXOSMITHKLINE-A0549997A

PATIENT
  Age: 66 Year
  Sex: Male

DRUGS (1)
  1. NICORETTE OTC, ORANGE [Suspect]
     Route: 002

REACTIONS (1)
  - JAUNDICE [None]
